FAERS Safety Report 11418885 (Version 1)
Quarter: 2015Q3

REPORT INFORMATION
  Report Type: Spontaneous
  Country: US (occurrence: None)
  Receive Date: 20150824
  Receipt Date: 20150824
  Transmission Date: 20151125
  Serious: Yes (Death, Hospitalization, Other)
  Sender: FDA-Public Use
  Company Number: ADR_2015-01601

PATIENT
  Age: 42 Year
  Sex: Male

DRUGS (4)
  1. INTRATHECAL MORPHINE [Suspect]
     Active Substance: MORPHINE
     Indication: PAIN
  2. COMPOUNDED BACLOFEN INTRATHECAL [Suspect]
     Active Substance: BACLOFEN
     Route: 037
  3. INTRATHECAL BUPIVACAINE [Suspect]
     Active Substance: BUPIVACAINE
  4. INTRATHECAL CLONIDINE [Suspect]
     Active Substance: CLONIDINE

REACTIONS (1)
  - Cough [None]
